FAERS Safety Report 4598886-3 (Version None)
Quarter: 2005Q1

REPORT INFORMATION
  Report Type: 
  Country: None (occurrence: None)
  Receive Date: 20050304
  Receipt Date: 20050223
  Transmission Date: 20050727
  Serious: Yes (Hospitalization)
  Sender: FDA-Public Use
  Company Number: ESWYE136225OCT04

PATIENT
  Age: 36 Year
  Sex: Male

DRUGS (4)
  1. ENBREL [Suspect]
     Indication: PSORIATIC ARTHROPATHY
     Route: 058
     Dates: start: 20040101, end: 20041001
  2. DEFLAZACORT [Concomitant]
  3. INDOMETHACIN [Concomitant]
  4. PARACETAMOL [Concomitant]

REACTIONS (4)
  - DYSPNOEA [None]
  - HYPERSENSITIVITY [None]
  - PNEUMONITIS [None]
  - PULMONARY FIBROSIS [None]
